FAERS Safety Report 4779414-6 (Version None)
Quarter: 2005Q3

REPORT INFORMATION
  Report Type: 
  Country: None (occurrence: None)
  Receive Date: 20050914
  Receipt Date: 20041204
  Transmission Date: 20060218
  Serious: Yes (Death, Hospitalization)
  Sender: FDA-Public Use
  Company Number: 163-20785-04120174

PATIENT
  Age: 76 Year
  Sex: Female
  Weight: 73.36 kg

DRUGS (7)
  1. THALOMID [Suspect]
     Indication: MULTIPLE MYELOMA
     Dosage: 200 MG, DAILY FOR 28 DAYS FOR 4 CYCLES, ORAL; 100 MG, ORAL
     Route: 048
     Dates: end: 20030214
  2. THALOMID [Suspect]
     Indication: MULTIPLE MYELOMA
     Dosage: 200 MG, DAILY FOR 28 DAYS FOR 4 CYCLES, ORAL; 100 MG, ORAL
     Route: 048
     Dates: start: 20021009
  3. DEXAMETHASONE [Suspect]
     Indication: MULTIPLE MYELOMA
     Dosage: 40 MG DAILY ON DAYS 1-4,9-12 AND 17-20 Q28 DAYS FOR 4 CYCLES, DAILY, ORAL;  1 MG, DAILY;  0.75 MG, Q
     Route: 042
     Dates: end: 20030210
  4. DEXAMETHASONE [Suspect]
     Indication: MULTIPLE MYELOMA
     Dosage: 40 MG DAILY ON DAYS 1-4,9-12 AND 17-20 Q28 DAYS FOR 4 CYCLES, DAILY, ORAL;  1 MG, DAILY;  0.75 MG, Q
     Route: 042
     Dates: start: 20021009
  5. PAMIDRONATE DISODIUM [Suspect]
     Indication: MULTIPLE MYELOMA
     Dosage: 90 MG OVER 2-4 HRS ON DAY 1 AND WKS 4, 8, 12  AND 16, INTRAVENOUS
     Route: 042
     Dates: start: 20021009, end: 20030207
  6. COUMADIN [Suspect]
     Indication: DEEP VEIN THROMBOSIS
     Dosage: 4 MG, DAILY
  7. COUMADIN [Suspect]
     Indication: PULMONARY EMBOLISM
     Dosage: 4 MG, DAILY

REACTIONS (7)
  - DEATH [None]
  - EMBOLISM [None]
  - HAEMOGLOBIN DECREASED [None]
  - HYPERKALAEMIA [None]
  - HYPOTENSION [None]
  - HYPOXIA [None]
  - PROTHROMBIN TIME PROLONGED [None]
